FAERS Safety Report 12270887 (Version 3)
Quarter: 2016Q2

REPORT INFORMATION
  Report Type: Report from Study
  Country: FR (occurrence: FR)
  Receive Date: 20160415
  Receipt Date: 20160429
  Transmission Date: 20160815
  Serious: Yes (Hospitalization)
  Sender: FDA-Public Use
  Company Number: FR-ROCHE-1738942

PATIENT
  Age: 64 Year
  Sex: Male
  Weight: 78 kg

DRUGS (45)
  1. OBINUTUZUMAB [Suspect]
     Active Substance: OBINUTUZUMAB
     Dosage: CYCLE 6 DAY 1?THIS WAS THE LAST DOSE PRIOR TO SAE 16/SEP/2014
     Route: 042
     Dates: start: 20140916
  2. ZELITREX [Concomitant]
     Active Substance: VALACYCLOVIR HYDROCHLORIDE
     Route: 048
     Dates: start: 20140416
  3. LORATADINE. [Concomitant]
     Active Substance: LORATADINE
     Route: 048
     Dates: start: 20140916, end: 20140916
  4. FLUDARABINE [Suspect]
     Active Substance: FLUDARABINE PHOSPHATE
     Dosage: CYCLE 5, ON DAY 1 AND 2
     Route: 048
     Dates: start: 20140820, end: 20140821
  5. CYCLOPHOSPHAMIDE. [Suspect]
     Active Substance: CYCLOPHOSPHAMIDE
     Dosage: CYCLE 3 ON DAY 1,2 AND 3
     Route: 048
     Dates: start: 20140618, end: 20140620
  6. CALCIUM GLUCONATE. [Concomitant]
     Active Substance: CALCIUM GLUCONATE
     Route: 042
     Dates: start: 20140416, end: 20140416
  7. AUGMENTIN [Concomitant]
     Active Substance: AMOXICILLIN\CLAVULANATE POTASSIUM
     Route: 048
     Dates: start: 20140715, end: 20140722
  8. CIFLOX (FRANCE) [Concomitant]
     Active Substance: CIPROFLOXACIN
     Route: 048
     Dates: start: 20140715, end: 20140722
  9. CLARITYNE [Concomitant]
     Active Substance: LORATADINE
     Dosage: ONE TABLET
     Route: 048
     Dates: start: 20140917, end: 20140919
  10. FLUDARABINE [Suspect]
     Active Substance: FLUDARABINE PHOSPHATE
     Dosage: CYCLE 3 DAY 3
     Route: 048
     Dates: start: 20140620, end: 20140620
  11. LEDERFOLINE [Concomitant]
     Active Substance: LEUCOVORIN CALCIUM
     Route: 048
     Dates: start: 20140416
  12. ONDANSETRON [Concomitant]
     Active Substance: ONDANSETRON
     Route: 042
     Dates: start: 20140819, end: 20140819
  13. OBINUTUZUMAB [Suspect]
     Active Substance: OBINUTUZUMAB
     Dosage: CYCLE 1 DAY 2?1000 MG SPLIT DOSE ON CYCLE 1, DAY 1 AND DAY 2.
     Route: 042
     Dates: start: 20140416, end: 20140416
  14. OBINUTUZUMAB [Suspect]
     Active Substance: OBINUTUZUMAB
     Dosage: CYCLE 1 DAY 8
     Route: 042
     Dates: start: 20140423, end: 20140423
  15. OBINUTUZUMAB [Suspect]
     Active Substance: OBINUTUZUMAB
     Dosage: CYCLE 1 DAY 15
     Route: 042
     Dates: start: 20140430, end: 20140430
  16. OBINUTUZUMAB [Suspect]
     Active Substance: OBINUTUZUMAB
     Dosage: CYCLE 3 DAY 1
     Route: 042
     Dates: start: 20140617, end: 20140617
  17. OBINUTUZUMAB [Suspect]
     Active Substance: OBINUTUZUMAB
     Dosage: CYCLE 5 DAY 1
     Route: 042
     Dates: start: 20140819, end: 20140819
  18. FLUDARABINE [Suspect]
     Active Substance: FLUDARABINE PHOSPHATE
     Dosage: CYCLE 1 DAY 3
     Route: 048
     Dates: start: 20140419, end: 20140419
  19. FLUDARABINE [Suspect]
     Active Substance: FLUDARABINE PHOSPHATE
     Dosage: CYCLE 6, ON DAY 1,2 AND 3?MOST RECENT DOSE PRIOR TO SAE: 18/SEP/2014
     Route: 048
     Dates: start: 20140916
  20. CYCLOPHOSPHAMIDE. [Suspect]
     Active Substance: CYCLOPHOSPHAMIDE
     Dosage: CYCLE 5 ON DAY 1,2 AND 3
     Route: 048
     Dates: start: 20140820, end: 20140822
  21. CYCLOPHOSPHAMIDE. [Suspect]
     Active Substance: CYCLOPHOSPHAMIDE
     Dosage: CYCLE 6 ON DAY 1,2 AND 3
     Route: 048
     Dates: start: 20140916
  22. POLARAMINE [Concomitant]
     Active Substance: DEXCHLORPHENIRAMINE MALEATE
     Dosage: BEFORE EACH OBINUTUZUMAB ADMINISATRATION
     Route: 042
     Dates: start: 20140416, end: 20140416
  23. PRIMPERAN [Concomitant]
     Active Substance: METOCLOPRAMIDE HYDROCHLORIDE
     Route: 048
     Dates: start: 20140416, end: 20140423
  24. OBINUTUZUMAB [Suspect]
     Active Substance: OBINUTUZUMAB
     Dosage: CYCLE 4 DAY 1
     Route: 042
     Dates: start: 20140722, end: 20140722
  25. FLUDARABINE [Suspect]
     Active Substance: FLUDARABINE PHOSPHATE
     Dosage: CYCLE 3 DAY 1
     Route: 048
     Dates: start: 20140618, end: 20140618
  26. EMEND [Concomitant]
     Active Substance: APREPITANT
     Route: 048
     Dates: start: 20140819, end: 20140819
  27. OBINUTUZUMAB [Suspect]
     Active Substance: OBINUTUZUMAB
     Indication: CHRONIC LYMPHOCYTIC LEUKAEMIA
     Dosage: 25 MG, CYCLE 1 DAY 1, TEMPORARILY INTERRUPTED?1000 MG SPLIT DOSE ON CYCLE 1, DAY 1 AND DAY 2.
     Route: 042
     Dates: start: 20140415, end: 20140415
  28. OBINUTUZUMAB [Suspect]
     Active Substance: OBINUTUZUMAB
     Dosage: CYCLE 2 DAY 1
     Route: 042
     Dates: start: 20140514, end: 20140514
  29. FLUDARABINE [Suspect]
     Active Substance: FLUDARABINE PHOSPHATE
     Dosage: CYCLE 1 DAY 2
     Route: 048
     Dates: start: 20140418, end: 20140418
  30. FLUDARABINE [Suspect]
     Active Substance: FLUDARABINE PHOSPHATE
     Dosage: CYCLE 2 DAY 1
     Route: 048
     Dates: start: 20140515, end: 20140515
  31. CYCLOPHOSPHAMIDE. [Suspect]
     Active Substance: CYCLOPHOSPHAMIDE
     Indication: CHRONIC LYMPHOCYTIC LEUKAEMIA
     Dosage: LAST DOSE PRIOR TO SAE ON 18/SEP/2014?CYCLE 1 ON DAY 1,2 AND 3
     Route: 048
     Dates: start: 20140417, end: 20140419
  32. PARACETAMOL [Concomitant]
     Active Substance: ACETAMINOPHEN
     Dosage: BEFORE EACH OBINUTUZUMAB ADMINISATRATION
     Route: 048
     Dates: start: 20140415, end: 20140416
  33. FASTURTEC [Concomitant]
     Active Substance: RASBURICASE
     Route: 042
     Dates: start: 20140415, end: 20140416
  34. FLUDARABINE [Suspect]
     Active Substance: FLUDARABINE PHOSPHATE
     Dosage: CYCLE 2 DAY 3
     Route: 048
     Dates: start: 20140516, end: 20140516
  35. FLUDARABINE [Suspect]
     Active Substance: FLUDARABINE PHOSPHATE
     Dosage: CYCLE 5, ON DAY 3
     Route: 048
     Dates: start: 20140822, end: 20140822
  36. CYCLOPHOSPHAMIDE. [Suspect]
     Active Substance: CYCLOPHOSPHAMIDE
     Dosage: CYCLE 4 ON DAY 1,2 AND 3
     Route: 048
     Dates: start: 20140723, end: 20140725
  37. POLARAMINE [Concomitant]
     Active Substance: DEXCHLORPHENIRAMINE MALEATE
     Dosage: BEFORE EACH OBINUTUZUMAB ADMINISATRATION
     Route: 042
     Dates: start: 20140415, end: 20140916
  38. SOLU-MEDROL [Concomitant]
     Active Substance: METHYLPREDNISOLONE SODIUM SUCCINATE
     Route: 042
     Dates: start: 20140415, end: 20140415
  39. ZYLORIC [Concomitant]
     Active Substance: ALLOPURINOL
     Route: 048
     Dates: start: 20140408, end: 20140414
  40. FLUDARABINE [Suspect]
     Active Substance: FLUDARABINE PHOSPHATE
     Indication: CHRONIC LYMPHOCYTIC LEUKAEMIA
     Dosage: CYCLE 1 DAY 1?LAST DOSE PRIOR TO SAE ON 18/SEP/2014
     Route: 048
     Dates: start: 20140417, end: 20140417
  41. FLUDARABINE [Suspect]
     Active Substance: FLUDARABINE PHOSPHATE
     Dosage: CYCLE 3 DAY 2
     Route: 048
     Dates: start: 20140619, end: 20140619
  42. FLUDARABINE [Suspect]
     Active Substance: FLUDARABINE PHOSPHATE
     Dosage: CYCLE 4,
     Route: 048
     Dates: start: 20140723, end: 20140725
  43. CYCLOPHOSPHAMIDE. [Suspect]
     Active Substance: CYCLOPHOSPHAMIDE
     Dosage: CYCLE 2 ON DAY 1,2 AND 3
     Route: 048
     Dates: start: 20140515, end: 20140518
  44. METHYLPREDNISOLONE. [Concomitant]
     Active Substance: METHYLPREDNISOLONE
     Dosage: BEFORE EACH OBINUTUZUMAB ADMINISATRATION
     Route: 042
     Dates: start: 20140415, end: 20140916
  45. ZOLPIDEM [Concomitant]
     Active Substance: ZOLPIDEM\ZOLPIDEM TARTRATE
     Route: 048
     Dates: start: 20140825, end: 20140826

REACTIONS (1)
  - Interstitial lung disease [Recovered/Resolved]

NARRATIVE: CASE EVENT DATE: 20160210
